FAERS Safety Report 17803900 (Version 1)
Quarter: 2020Q2

REPORT INFORMATION
  Report Type: Spontaneous
  Country: DE (occurrence: DE)
  Receive Date: 20200519
  Receipt Date: 20200519
  Transmission Date: 20200714
  Serious: Yes (Hospitalization)
  Sender: FDA-Public Use
  Company Number: NVSC2020DE137186

PATIENT
  Age: 50 Year
  Sex: Male

DRUGS (1)
  1. ADALIMUMAB [Suspect]
     Active Substance: ADALIMUMAB
     Indication: PRODUCT USED FOR UNKNOWN INDICATION
     Dosage: 14-T?GIG
     Route: 065

REACTIONS (4)
  - Decreased appetite [Unknown]
  - C-reactive protein increased [Unknown]
  - Abdominal pain [Unknown]
  - Dyspnoea exertional [Unknown]
